FAERS Safety Report 18783655 (Version 3)
Quarter: 2021Q1

REPORT INFORMATION
  Report Type: Spontaneous
  Country: TR (occurrence: TR)
  Receive Date: 20210125
  Receipt Date: 20210202
  Transmission Date: 20210419
  Serious: Yes (Other)
  Sender: FDA-Public Use
  Company Number: TR-PFIZER INC-2021049279

PATIENT
  Sex: Female

DRUGS (2)
  1. QUINAPRIL. [Suspect]
     Active Substance: QUINAPRIL
     Dosage: 20 MG
  2. QUINAPRIL. [Suspect]
     Active Substance: QUINAPRIL
     Dosage: UNK

REACTIONS (1)
  - Eye haemorrhage [Unknown]
